FAERS Safety Report 23664164 (Version 1)
Quarter: 2024Q1

REPORT INFORMATION
  Report Type: Spontaneous
  Country: DE (occurrence: DE)
  Receive Date: 20240322
  Receipt Date: 20240322
  Transmission Date: 20240410
  Serious: Yes (Hospitalization, Other)
  Sender: FDA-Public Use
  Company Number: DE-ABBVIE-5664342

PATIENT
  Sex: Male

DRUGS (4)
  1. ADALIMUMAB [Suspect]
     Active Substance: ADALIMUMAB\ISOPROPYL ALCOHOL
     Indication: Colitis ulcerative
     Dosage: UNK
     Route: 058
     Dates: start: 2019
  2. ENTYVIO [Suspect]
     Active Substance: VEDOLIZUMAB
     Indication: Colitis ulcerative
     Dosage: UNK
     Route: 065
     Dates: start: 2020
  3. TOFACITINIB [Suspect]
     Active Substance: TOFACITINIB
     Indication: Colitis ulcerative
     Dosage: UNK
     Route: 065
     Dates: start: 2022
  4. STELARA [Suspect]
     Active Substance: USTEKINUMAB
     Indication: Colitis ulcerative
     Dosage: UNK
     Route: 065
     Dates: start: 2021

REACTIONS (18)
  - Faecal calprotectin increased [Unknown]
  - Rectal haemorrhage [Unknown]
  - Crohn^s disease [Unknown]
  - Purulent discharge [Unknown]
  - Ileostomy [Unknown]
  - General physical health deterioration [Unknown]
  - Enteritis [Unknown]
  - Cachexia [Unknown]
  - C-reactive protein increased [Unknown]
  - Proctocolectomy [Unknown]
  - Nutritional condition abnormal [Unknown]
  - Serum ferritin increased [Unknown]
  - Anaemia [Unknown]
  - Drug ineffective [Unknown]
  - Infection susceptibility increased [Unknown]
  - Osteoporosis [Unknown]
  - Iron deficiency anaemia [Unknown]
  - General physical health deterioration [Unknown]

NARRATIVE: CASE EVENT DATE: 20221101
